FAERS Safety Report 10093288 (Version 1)
Quarter: 2014Q2

REPORT INFORMATION
  Report Type: Spontaneous
  Country: US (occurrence: US)
  Receive Date: 20140421
  Receipt Date: 20140421
  Transmission Date: 20141212
  Serious: No
  Sender: FDA-Public Use
  Company Number: US-SA-2013SA123383

PATIENT
  Age: 83 Year
  Sex: Male

DRUGS (4)
  1. ALLEGRA [Suspect]
     Route: 048
     Dates: start: 201310
  2. CRESTOR [Concomitant]
     Route: 065
     Dates: start: 1990
  3. POTASSIUM [Concomitant]
     Indication: JOINT SWELLING
     Route: 065
     Dates: start: 1990
  4. FUROSEMIDE [Concomitant]
     Indication: JOINT SWELLING
     Route: 065

REACTIONS (2)
  - Rhinorrhoea [Recovered/Resolved]
  - Drug ineffective [Unknown]
